FAERS Safety Report 24304849 (Version 4)
Quarter: 2024Q4

REPORT INFORMATION
  Report Type: Spontaneous
  Country: US (occurrence: US)
  Receive Date: 20240910
  Receipt Date: 20241023
  Transmission Date: 20250115
  Serious: No
  Sender: ROCHE
  Company Number: US-ROCHE-10000071875

PATIENT
  Age: 77 Year
  Sex: Female
  Weight: 71.21 kg

DRUGS (10)
  1. ACTEMRA ACTPEN [Suspect]
     Active Substance: TOCILIZUMAB
     Indication: Polymyalgia rheumatica
     Dosage: EVERY THURSDAY IN THE EVENING, STRENGTH: 162 MG
     Route: 058
     Dates: start: 20240815
  2. ACTEMRA ACTPEN [Suspect]
     Active Substance: TOCILIZUMAB
     Indication: Rheumatoid arthritis
  3. ELIQUIS [Suspect]
     Active Substance: APIXABAN
     Indication: Atrial fibrillation
     Route: 048
  4. METHOTREXATE [Concomitant]
     Active Substance: METHOTREXATE
     Indication: Polymyalgia rheumatica
     Route: 048
  5. FOLIC ACID [Concomitant]
     Active Substance: FOLIC ACID
     Dosage: DO NOT TAKE ON THE DAY OF THE METHOTREXATE
     Route: 048
  6. EVENITY [Concomitant]
     Active Substance: ROMOSOZUMAB-AQQG
     Indication: Osteoporosis
     Dosage: 2 SYRINGES PER DOSE
     Route: 058
     Dates: start: 202310
  7. FLECAINIDE [Concomitant]
     Active Substance: FLECAINIDE
     Indication: Atrial fibrillation
     Dosage: 1 AND 1/2 TABLET OF A 50 MG TABLET IN THE EVENING
     Route: 048
  8. FLECAINIDE [Concomitant]
     Active Substance: FLECAINIDE
     Dosage: ONE 50 MG TABLET IN THE MORNING
     Route: 048
  9. KEVZARA [Concomitant]
     Active Substance: SARILUMAB
     Indication: Polymyalgia rheumatica
     Dates: start: 202404
  10. KEVZARA [Concomitant]
     Active Substance: SARILUMAB
     Indication: Rheumatoid arthritis

REACTIONS (7)
  - Device defective [Unknown]
  - Device difficult to use [Unknown]
  - Contusion [Unknown]
  - Product storage error [Unknown]
  - Product complaint [Unknown]
  - Frustration tolerance decreased [Unknown]
  - Wrong technique in device usage process [Unknown]

NARRATIVE: CASE EVENT DATE: 20240829
